FAERS Safety Report 5410501-5 (Version None)
Quarter: 2007Q3

REPORT INFORMATION
  Report Type: 
  Country: None (occurrence: None)
  Receive Date: 20070810
  Receipt Date: 20070126
  Transmission Date: 20080115
  Serious: No
  Sender: FDA-Public Use
  Company Number: A0637190A

PATIENT
  Sex: Female

DRUGS (6)
  1. PAROXETINE [Suspect]
     Indication: DEPRESSION
     Dosage: 10MG UNKNOWN
     Route: 048
  2. PAXIL CR [Suspect]
     Indication: DEPRESSION
     Route: 048
  3. AMBIEN [Concomitant]
  4. VYTORIN [Concomitant]
  5. VALIUM [Concomitant]
  6. PRILOSEC [Concomitant]

REACTIONS (10)
  - AGITATION [None]
  - ANXIETY [None]
  - DEPRESSION [None]
  - DRUG INEFFECTIVE [None]
  - ENERGY INCREASED [None]
  - FATIGUE [None]
  - FORMICATION [None]
  - MUSCLE TWITCHING [None]
  - RESTLESS LEGS SYNDROME [None]
  - SEDATION [None]
